FAERS Safety Report 4657955-X (Version None)
Quarter: 2005Q2

REPORT INFORMATION
  Report Type: 
  Country: None (occurrence: None)
  Receive Date: 20050510
  Receipt Date: 20050502
  Transmission Date: 20051028
  Serious: Yes (Hospitalization)
  Sender: FDA-Public Use
  Company Number: 2005UW06747

PATIENT

DRUGS (6)
  1. SEROQUEL [Suspect]
     Route: 048
  2. WELLBUTRIN SR [Interacting]
  3. COGENTIN [Interacting]
  4. TRAZODONE [Interacting]
  5. KLONOPIN [Interacting]
  6. TRILAFON [Interacting]

REACTIONS (1)
  - DRUG INTERACTION [None]
